FAERS Safety Report 7439472-7 (Version None)
Quarter: 2011Q2

REPORT INFORMATION
  Report Type: 
  Country: None (occurrence: None)
  Receive Date: 20110427
  Receipt Date: 20110420
  Transmission Date: 20111010
  Serious: Yes (Life-Threatening, Hospitalization)
  Sender: FDA-Public Use
  Company Number: JP-JNJFOC-20110201689

PATIENT
  Age: 67 Year
  Sex: Female

DRUGS (8)
  1. DOXORUBICIN HYDROCHLORIDE [Suspect]
     Route: 042
  2. TAKEPRON [Concomitant]
     Indication: PROPHYLAXIS
     Route: 048
  3. ENSURE [Concomitant]
     Indication: HYPOPHAGIA
     Route: 048
  4. DOXORUBICIN HYDROCHLORIDE [Suspect]
     Indication: MALIGNANT PERITONEAL NEOPLASM
     Route: 042
  5. PACLITAXEL [Suspect]
     Indication: MALIGNANT PERITONEAL NEOPLASM
     Route: 065
  6. CARBOPLATIN [Suspect]
     Indication: MALIGNANT PERITONEAL NEOPLASM
     Route: 065
  7. MAGMITT [Concomitant]
     Indication: CONSTIPATION
     Route: 048
  8. GASMOTIN [Concomitant]
     Indication: GASTRITIS
     Route: 048

REACTIONS (5)
  - PNEUMOCYSTIS JIROVECI PNEUMONIA [None]
  - WHITE BLOOD CELL COUNT DECREASED [None]
  - OFF LABEL USE [None]
  - FEBRILE NEUTROPENIA [None]
  - INTERSTITIAL LUNG DISEASE [None]
